FAERS Safety Report 6037576-7 (Version None)
Quarter: 2009Q1

REPORT INFORMATION
  Report Type: 
  Country: None (occurrence: None)
  Receive Date: 20090114
  Receipt Date: 20090106
  Transmission Date: 20090719
  Serious: Yes (Hospitalization)
  Sender: FDA-Public Use
  Company Number: US-ELI_LILLY_AND_COMPANY-US200810001472

PATIENT
  Sex: Female

DRUGS (3)
  1. CYMBALTA [Suspect]
     Indication: PAIN
     Dosage: 1 D/F, UNK
     Dates: start: 20070601, end: 20080107
  2. REBIF [Concomitant]
     Indication: MULTIPLE SCLEROSIS
     Dosage: 44 UG, OTHER
     Route: 058
     Dates: start: 20060622, end: 20080201
  3. ULTRAM [Concomitant]
     Indication: MYALGIA
     Dosage: 1 D/F, 2/D

REACTIONS (8)
  - ANXIETY [None]
  - BIPOLAR DISORDER [None]
  - CHEST PAIN [None]
  - DIARRHOEA [None]
  - FIBROMYALGIA [None]
  - MALAISE [None]
  - PAIN IN JAW [None]
  - SCHIZOAFFECTIVE DISORDER [None]
